FAERS Safety Report 22529724 (Version 1)
Quarter: 2023Q2

REPORT INFORMATION
  Report Type: Spontaneous
  Country: US (occurrence: US)
  Receive Date: 20230607
  Receipt Date: 20230607
  Transmission Date: 20230721
  Serious: Yes (Other)
  Sender: FDA-Public Use
  Company Number: US-ASTELLAS-2023US017004

PATIENT
  Age: 73 Year
  Sex: Female

DRUGS (2)
  1. MYRBETRIQ [Suspect]
     Active Substance: MIRABEGRON
     Indication: Product used for unknown indication
     Route: 065
  2. MYRBETRIQ [Suspect]
     Active Substance: MIRABEGRON
     Route: 065
     Dates: start: 202204

REACTIONS (9)
  - Urinary retention postoperative [Unknown]
  - Condition aggravated [Unknown]
  - Bladder dilatation [Unknown]
  - Post procedural complication [Unknown]
  - Bladder pain [Unknown]
  - Heart rate abnormal [Unknown]
  - Blood pressure abnormal [Unknown]
  - Skin discolouration [Unknown]
  - Presyncope [Unknown]

NARRATIVE: CASE EVENT DATE: 20220401
